FAERS Safety Report 9741107 (Version 1)
Quarter: 2013Q4

REPORT INFORMATION
  Report Type: Report from Study
  Country: US (occurrence: US)
  Receive Date: 20131209
  Receipt Date: 20131209
  Transmission Date: 20140711
  Serious: No
  Sender: FDA-Public Use
  Company Number: US-VERTEX PHARMACEUTICALS INC-2013-011457

PATIENT
  Age: 48 Year
  Sex: Female
  Weight: 69 kg

DRUGS (8)
  1. VX-950 (TELAPREVIR) [Suspect]
     Indication: HEPATITIS C
     Dosage: 2 DF, TID
     Route: 048
     Dates: start: 20131023, end: 20131119
  2. PEGASYS [Suspect]
     Indication: HEPATITIS C
     Dosage: 90 ?G, QW
     Dates: start: 20131023
  3. RIBAVIRIN [Suspect]
     Indication: HEPATITIS C
     Dosage: 1 DF, QD
     Dates: start: 20131023
  4. LASIX [Concomitant]
     Indication: FLUID RETENTION
     Route: 048
  5. HEPARIN [Concomitant]
     Indication: DIALYSIS
     Route: 042
  6. METOPROLOL [Concomitant]
     Indication: BLOOD PRESSURE
     Route: 048
  7. FOSRENOL [Concomitant]
     Indication: BLOOD PHOSPHORUS DECREASED
     Route: 048
  8. IRON SUCROSE [Concomitant]
     Indication: SUPPLEMENTATION THERAPY
     Route: 048

REACTIONS (4)
  - Nasopharyngitis [Not Recovered/Not Resolved]
  - Anaemia [Unknown]
  - Pruritus [Recovered/Resolved]
  - Nausea [Recovered/Resolved]
